FAERS Safety Report 6192744-9 (Version None)
Quarter: 2009Q2

REPORT INFORMATION
  Report Type: 
  Country: None (occurrence: None)
  Receive Date: 20090514
  Receipt Date: 20090514
  Transmission Date: 20091009
  Serious: Yes (Hospitalization)
  Sender: FDA-Public Use
  Company Number: None

PATIENT
  Sex: Female
  Weight: 99 kg

DRUGS (2)
  1. CARBOPLATIN [Suspect]
     Dosage: 640 MG
     Dates: end: 20090501
  2. TAXOTERE [Suspect]
     Dosage: 148 MG
     Dates: end: 20090501

REACTIONS (1)
  - BODY TEMPERATURE INCREASED [None]
